FAERS Safety Report 13442524 (Version 7)
Quarter: 2018Q1

REPORT INFORMATION
  Report Type: Report from Study
  Country: US (occurrence: US)
  Receive Date: 20170414
  Receipt Date: 20180302
  Transmission Date: 20180508
  Serious: Yes (Hospitalization)
  Sender: FDA-Public Use
  Company Number: US-JNJFOC-20170414889

PATIENT
  Age: 69 Year
  Sex: Female

DRUGS (11)
  1. IMBRUVICA [Suspect]
     Active Substance: IBRUTINIB
     Indication: CHRONIC LYMPHOCYTIC LEUKAEMIA
     Route: 048
     Dates: start: 20170215
  2. PAXIL [Concomitant]
     Active Substance: PAROXETINE HYDROCHLORIDE
  3. MULTIVITAMINS [Concomitant]
     Active Substance: VITAMINS
  4. IMBRUVICA [Suspect]
     Active Substance: IBRUTINIB
     Indication: ACUTE LYMPHOCYTIC LEUKAEMIA
     Route: 048
     Dates: start: 20170215
  5. VITAMIN B COMPLEX [Concomitant]
     Active Substance: CYANOCOBALAMIN\DEXPANTHENOL\NIACINAMIDE\PYRIDOXINE HYDROCHLORIDE\RIBOFLAVIN 5^-PHOSPHATE SODIUM\THIAMINE HYDROCHLORIDE\VITAMIN B COMPLEX
  6. NEXIUM [Concomitant]
     Active Substance: ESOMEPRAZOLE MAGNESIUM
  7. ACYCLOVIR. [Concomitant]
     Active Substance: ACYCLOVIR
  8. VITAMIN B [Concomitant]
     Active Substance: VITAMIN B
  9. IMBRUVICA [Suspect]
     Active Substance: IBRUTINIB
     Indication: ACUTE LYMPHOCYTIC LEUKAEMIA
     Dosage: 8 DAYS
     Route: 048
     Dates: start: 20170328, end: 20170404
  10. IMBRUVICA [Suspect]
     Active Substance: IBRUTINIB
     Indication: CHRONIC LYMPHOCYTIC LEUKAEMIA
     Dosage: 8 DAYS
     Route: 048
     Dates: start: 20170328, end: 20170404
  11. PROTONIX [Concomitant]
     Active Substance: PANTOPRAZOLE SODIUM

REACTIONS (19)
  - Off label use [Unknown]
  - Vomiting [Unknown]
  - Stomatitis [Unknown]
  - Pruritus [Unknown]
  - Intra-abdominal fluid collection [Unknown]
  - Platelet count decreased [Unknown]
  - Weight increased [Unknown]
  - Product use in unapproved indication [Unknown]
  - Cognitive disorder [Unknown]
  - Fatigue [Unknown]
  - Abdominal pain [Recovering/Resolving]
  - Vision blurred [Unknown]
  - Blood count abnormal [Unknown]
  - Intra-abdominal haemorrhage [Unknown]
  - Pain [Unknown]
  - Pyrexia [Unknown]
  - Dizziness [Unknown]
  - Malaise [Unknown]
  - Peripheral swelling [Unknown]

NARRATIVE: CASE EVENT DATE: 2017
